FAERS Safety Report 13420628 (Version 3)
Quarter: 2017Q3

REPORT INFORMATION
  Report Type: Spontaneous
  Country: TW (occurrence: TW)
  Receive Date: 20170408
  Receipt Date: 20170706
  Transmission Date: 20171127
  Serious: Yes (Hospitalization)
  Sender: FDA-Public Use
  Company Number: PHHY2017TW049471

PATIENT
  Age: 3 Year
  Sex: Male
  Weight: 15 kg

DRUGS (1)
  1. VOTUBIA [Suspect]
     Active Substance: EVEROLIMUS
     Indication: ASTROCYTOMA, LOW GRADE
     Dosage: 2.5 MG, QD
     Route: 048
     Dates: start: 20160323, end: 20170108

REACTIONS (19)
  - Respiratory acidosis [Unknown]
  - Pyrexia [Unknown]
  - Subretinal haematoma [Unknown]
  - Fall [Unknown]
  - Rhinorrhoea [Unknown]
  - Decreased appetite [Unknown]
  - Vomiting [Unknown]
  - Status epilepticus [Unknown]
  - Otitis media acute [Unknown]
  - Febrile convulsion [Unknown]
  - Gaze palsy [Unknown]
  - Hypotonia [Unknown]
  - Drooling [Unknown]
  - Mouth ulceration [Unknown]
  - Cough [Unknown]
  - Seizure [Unknown]
  - Cardiac neoplasm unspecified [Unknown]
  - Hypercapnia [Unknown]
  - Pneumonia [Unknown]

NARRATIVE: CASE EVENT DATE: 20170101
